FAERS Safety Report 13886349 (Version 1)
Quarter: 2017Q3

REPORT INFORMATION
  Report Type: Other
  Country: CN (occurrence: CN)
  Receive Date: 20170821
  Receipt Date: 20170821
  Transmission Date: 20171127
  Serious: Yes (Other)
  Sender: FDA-Public Use
  Company Number: CN-GEHC-2017CSU002528

PATIENT

DRUGS (3)
  1. ASPIRIN                            /00002701/ [Suspect]
     Active Substance: ASPIRIN
     Indication: PLATELET DISORDER
     Dosage: 100 MG, QD
     Route: 048
     Dates: start: 20170615, end: 20170620
  2. VISIPAQUE [Suspect]
     Active Substance: IODIXANOL
     Indication: CORONARY ARTERY DISEASE
     Dosage: 32 ML, SINGLE
     Route: 013
     Dates: start: 20170619, end: 20170619
  3. LIPITOR [Suspect]
     Active Substance: ATORVASTATIN CALCIUM
     Indication: HYPERLIPIDAEMIA
     Dosage: 20 MG, QD
     Route: 065
     Dates: start: 20170615, end: 20170620

REACTIONS (3)
  - Indifference [Recovered/Resolved]
  - Flushing [Recovered/Resolved]
  - Blood pressure decreased [Recovered/Resolved]

NARRATIVE: CASE EVENT DATE: 20170619
